FAERS Safety Report 5776131-0 (Version None)
Quarter: 2008Q2

REPORT INFORMATION
  Report Type: 
  Country: None (occurrence: None)
  Receive Date: 20080613
  Receipt Date: 20080602
  Transmission Date: 20081010
  Serious: Yes (Hospitalization)
  Sender: FDA-Public Use
  Company Number: 08-000893

PATIENT
  Age: 48 Year
  Sex: Male

DRUGS (4)
  1. TACLONEX [Suspect]
     Dosage: TOPICAL
     Route: 061
  2. ADALIMUMAB(ADALIMUMAB) [Suspect]
  3. ISONIAZID [Suspect]
  4. EPROSARTAN MESILATE(EPROSARTAN MESILATE) [Suspect]

REACTIONS (1)
  - DERMATITIS EXFOLIATIVE [None]
